FAERS Safety Report 7652518-6 (Version None)
Quarter: 2011Q3

REPORT INFORMATION
  Report Type: 
  Country: None (occurrence: None)
  Receive Date: 20110728
  Receipt Date: 20110725
  Transmission Date: 20111222
  Serious: Yes (Death)
  Sender: FDA-Public Use
  Company Number: 201110925

PATIENT
  Age: 53 Year
  Sex: Female

DRUGS (4)
  1. CLONIDINE [Concomitant]
  2. DILAUDID [Concomitant]
  3. BUPIVACAINE HCL [Concomitant]
  4. LIORESAL [Suspect]
     Indication: MUSCLE SPASTICITY
     Dosage: 93.67 MCG, DAILY, INTRATHECAL
     Route: 037

REACTIONS (1)
  - BREAST CANCER [None]
